FAERS Safety Report 10206084 (Version 2)
Quarter: 2014Q2

REPORT INFORMATION
  Report Type: Spontaneous
  Country: CN (occurrence: None)
  Receive Date: 20140527
  Receipt Date: 20140605
  Transmission Date: 20141212
  Serious: Yes (Death, Other)
  Sender: FDA-Public Use
  Company Number: CN-JNJFOC-20140513064

PATIENT
  Age: 83 Year
  Sex: 0

DRUGS (6)
  1. DECITABINE [Suspect]
     Indication: CHRONIC MYELOMONOCYTIC LEUKAEMIA
     Route: 042
  2. DECITABINE [Suspect]
     Indication: MYELODYSPLASTIC SYNDROME
     Route: 042
  3. DECITABINE [Suspect]
     Indication: CHRONIC MYELOMONOCYTIC LEUKAEMIA
     Dosage: 10 MGB IV.
  4. DECITABINE [Suspect]
     Indication: MYELODYSPLASTIC SYNDROME
     Dosage: 10 MGB IV.
  5. AUTOLOGOUS CYTOKINE INDUCED KILLER CELLS (CYTOKINES AND IMMUNODULATORS) INTRAVENOUS INFUSION [Suspect]
     Indication: CHRONIC MYELOMONOCYTIC LEUKAEMIA
     Dosage: 2X10^9-8X10^9 EACH TIME INTRAVENOUS
     Route: 042
  6. AUTOLOGOUS CYTOKINE INDUCED KILLER CELLS (CYTOKINES AND IMMUNODULATORS) INTRAVENOUS INFUSION [Suspect]
     Indication: MYELODYSPLASTIC SYNDROME
     Dosage: 2X10^9-8X10^9 EACH TIME INTRAVENOUS
     Route: 042

REACTIONS (7)
  - Bone marrow failure [None]
  - Gastrointestinal disorder [None]
  - Leukocytosis [None]
  - Haemoglobin decreased [None]
  - Chronic myelomonocytic leukaemia [None]
  - Malignant neoplasm progression [None]
  - Pneumonia [None]
